FAERS Safety Report 9283588 (Version 1)
Quarter: 2013Q2

REPORT INFORMATION
  Report Type: Spontaneous
  Country: IR (occurrence: IR)
  Receive Date: 20130510
  Receipt Date: 20130510
  Transmission Date: 20140414
  Serious: Yes (Other)
  Sender: FDA-Public Use
  Company Number: PHHY2013IR044939

PATIENT
  Age: 36 Year
  Sex: Male

DRUGS (5)
  1. TACROLIMUS [Suspect]
     Indication: IMMUNOSUPPRESSION
     Dosage: 4 MG PER DAY
  2. PREDNISOLONE [Suspect]
     Indication: IMMUNOSUPPRESSION
     Dosage: 10 MG, PER DAY
  3. PREDNISOLONE [Suspect]
     Dosage: 5 MG, PER DAY
  4. CELLCEPT [Suspect]
     Indication: IMMUNOSUPPRESSION
     Dosage: 2000 MG, PER DAY
  5. CELLCEPT [Suspect]
     Dosage: 2500 MG, PER DAY

REACTIONS (4)
  - Testicular germ cell tumour mixed [Unknown]
  - Testicular mass [Unknown]
  - Testicular disorder [Unknown]
  - Metastases to lymph nodes [Unknown]
